FAERS Safety Report 19279220 (Version 2)
Quarter: 2021Q2

REPORT INFORMATION
  Report Type: Spontaneous
  Country: CN (occurrence: CN)
  Receive Date: 20210520
  Receipt Date: 20210521
  Transmission Date: 20210717
  Serious: Yes (Death, Other)
  Sender: FDA-Public Use
  Company Number: CN-PFIZER INC-2021521091

PATIENT
  Age: 73 Year
  Sex: Male
  Weight: 45 kg

DRUGS (3)
  1. SUTENT [Suspect]
     Active Substance: SUNITINIB MALATE
     Dosage: 4 CAPSULES, 1X/DAY
     Route: 048
     Dates: start: 202104, end: 20210426
  2. SUTENT [Suspect]
     Active Substance: SUNITINIB MALATE
     Indication: RENAL CELL CARCINOMA
     Dosage: 3 CAPSULES, 1X/DAY
     Route: 048
     Dates: start: 20210401, end: 202104
  3. CELECOXIB. [Concomitant]
     Active Substance: CELECOXIB
     Indication: PAIN
     Dosage: 1 TABLET, 2X/DAY
     Route: 048
     Dates: start: 20210323, end: 20210426

REACTIONS (3)
  - Death [Fatal]
  - Haematemesis [Unknown]
  - Neoplasm progression [Unknown]

NARRATIVE: CASE EVENT DATE: 202104
